FAERS Safety Report 8507780-4 (Version None)
Quarter: 2012Q3

REPORT INFORMATION
  Report Type: 
  Country: None (occurrence: None)
  Receive Date: 20120713
  Receipt Date: 20120706
  Transmission Date: 20120928
  Serious: Yes (Death)
  Sender: FDA-Public Use
  Company Number: PHHY2012CO047318

PATIENT
  Sex: Male

DRUGS (4)
  1. CHEMOTHERAPEUTICS [Concomitant]
  2. ACETAMINOPHEN [Concomitant]
  3. TRAMADOL HCL [Concomitant]
  4. SANDOSTATIN LAR [Suspect]
     Indication: NEUROENDOCRINE TUMOUR
     Dosage: 20 MG, UNK
     Route: 030
     Dates: end: 20111001

REACTIONS (1)
  - RESPIRATORY ARREST [None]
